FAERS Safety Report 6520037-6 (Version None)
Quarter: 2009Q4

REPORT INFORMATION
  Report Type: 
  Country: None (occurrence: None)
  Receive Date: 20091229
  Receipt Date: 20091223
  Transmission Date: 20100525
  Serious: Yes (Life-Threatening, Hospitalization)
  Sender: FDA-Public Use
  Company Number: GB-ROCHE-676158

PATIENT
  Age: 39 Year
  Sex: Female

DRUGS (3)
  1. TAMIFLU [Suspect]
     Indication: DRUG USE FOR UNKNOWN INDICATION
     Route: 065
     Dates: start: 20091214
  2. FLUOXETINE [Concomitant]
  3. ORLISTAT [Concomitant]

REACTIONS (3)
  - ACUTE HEPATIC FAILURE [None]
  - RASH ERYTHEMATOUS [None]
  - RENAL FAILURE ACUTE [None]
